FAERS Safety Report 6526741-8 (Version None)
Quarter: 2009Q4

REPORT INFORMATION
  Report Type: 
  Country: None (occurrence: None)
  Receive Date: 20091214
  Receipt Date: 20081210
  Transmission Date: 20100525
  Serious: Yes (Other)
  Sender: FDA-Public Use
  Company Number: 602470

PATIENT
  Age: 73 Year
  Sex: Male

DRUGS (2)
  1. PEGASYS [Suspect]
     Indication: HEPATITIS C
     Dates: start: 20050101
  2. RIBAVIRIN [Suspect]
     Indication: HEPATITIS C
     Dates: start: 20050101

REACTIONS (5)
  - CEREBROVASCULAR ACCIDENT [None]
  - DIABETES MELLITUS [None]
  - FATIGUE [None]
  - PANCYTOPENIA [None]
  - TRANSIENT ISCHAEMIC ATTACK [None]
